FAERS Safety Report 24346812 (Version 2)
Quarter: 2024Q4

REPORT INFORMATION
  Report Type: Spontaneous
  Country: US (occurrence: US)
  Receive Date: 20240921
  Receipt Date: 20241014
  Transmission Date: 20250114
  Serious: No
  Sender: ROCHE
  Company Number: US-ROCHE-10000082661

PATIENT
  Sex: Female
  Weight: 77.11 kg

DRUGS (3)
  1. CELLCEPT [Suspect]
     Active Substance: MYCOPHENOLATE MOFETIL
     Indication: Sarcoidosis
     Dosage: 1500 MG BID
     Route: 065
     Dates: start: 2002
  2. ACYCLOVIR [Concomitant]
     Active Substance: ACYCLOVIR
     Indication: Uveitis
     Dosage: 400 MG BID
  3. PREDNISONE [Concomitant]
     Active Substance: PREDNISONE

REACTIONS (4)
  - Off label use [Unknown]
  - Arthropathy [Unknown]
  - Pain in extremity [Not Recovered/Not Resolved]
  - Infection [Unknown]
